FAERS Safety Report 22684974 (Version 2)
Quarter: 2023Q4

REPORT INFORMATION
  Report Type: Report from Study
  Country: US (occurrence: US)
  Receive Date: 20230710
  Receipt Date: 20231027
  Transmission Date: 20240109
  Serious: No
  Sender: FDA-Public Use
  Company Number: US-ACADIA PHARMACEUTICALS INC.-ACA-2023-PIM-002428

PATIENT
  Age: 77 Year
  Sex: Male

DRUGS (2)
  1. NUPLAZID [Suspect]
     Active Substance: PIMAVANSERIN TARTRATE
     Indication: Parkinson^s disease
     Dosage: 34 MILLIGRAM, QD
     Route: 048
     Dates: start: 202306
  2. NUPLAZID [Suspect]
     Active Substance: PIMAVANSERIN TARTRATE
     Indication: Hallucination
     Dosage: 68 MILLIGRAM (2 CAPSULES OF 34MG), QD
     Route: 048
     Dates: start: 20231002, end: 20231002

REACTIONS (3)
  - Delusion [Unknown]
  - Memory impairment [Unknown]
  - Accidental overdose [Unknown]

NARRATIVE: CASE EVENT DATE: 20230601
